FAERS Safety Report 21244917 (Version 1)
Quarter: 2022Q3

REPORT INFORMATION
  Report Type: Spontaneous
  Country: US (occurrence: None)
  Receive Date: 20220822
  Receipt Date: 20220822
  Transmission Date: 20221027
  Serious: Yes (Death)
  Sender: FDA-Public Use
  Company Number: None

PATIENT
  Age: 43 Year
  Sex: Male
  Weight: 79.83 kg

DRUGS (3)
  1. EPCLUSA [Suspect]
     Active Substance: SOFOSBUVIR\VELPATASVIR
     Indication: Hepatitis C
     Dosage: 1 TABLET DAILY ORALLY
     Route: 048
     Dates: start: 20220523, end: 20220819
  2. FUROSEMIDE [Concomitant]
     Active Substance: FUROSEMIDE
  3. LACTULOSE [Concomitant]
     Active Substance: LACTULOSE

REACTIONS (1)
  - Death [None]

NARRATIVE: CASE EVENT DATE: 20220819
